FAERS Safety Report 13456817 (Version 1)
Quarter: 2017Q2

REPORT INFORMATION
  Report Type: Spontaneous
  Country: RU (occurrence: RU)
  Receive Date: 20170418
  Receipt Date: 20170418
  Transmission Date: 20170830
  Serious: Yes (Hospitalization)
  Sender: FDA-Public Use
  Company Number: RU-ASTRAZENECA-2017SE39694

PATIENT
  Age: 65 Year
  Sex: Female
  Weight: 100 kg

DRUGS (5)
  1. LEVEMIR [Concomitant]
     Active Substance: INSULIN DETEMIR
     Dates: start: 201612, end: 201703
  2. FORXIGA [Suspect]
     Active Substance: DAPAGLIFLOZIN
     Indication: TYPE 2 DIABETES MELLITUS
     Route: 048
     Dates: start: 201612, end: 201704
  3. METFORMIN [Concomitant]
     Active Substance: METFORMIN HYDROCHLORIDE
     Dates: start: 201612, end: 201703
  4. LORISTA [Concomitant]
     Active Substance: LOSARTAN POTASSIUM
     Dates: start: 201704
  5. HUMULIN NOS [Concomitant]
     Active Substance: INSULIN HUMAN
     Dates: start: 201704

REACTIONS (2)
  - Pneumonia [Recovering/Resolving]
  - Blood glucose abnormal [Unknown]
